FAERS Safety Report 5825131-0 (Version None)
Quarter: 2008Q3

REPORT INFORMATION
  Report Type: 
  Country: None (occurrence: None)
  Receive Date: 20080729
  Receipt Date: 20080717
  Transmission Date: 20090109
  Serious: Yes (Hospitalization)
  Sender: FDA-Public Use
  Company Number: JP-JNJFOC-20080704798

PATIENT
  Age: 65 Year
  Sex: Female

DRUGS (7)
  1. REMICADE [Suspect]
     Route: 042
  2. REMICADE [Suspect]
     Route: 042
  3. REMICADE [Suspect]
     Indication: RHEUMATOID ARTHRITIS
     Route: 042
  4. METHOTREXATE [Suspect]
     Indication: RHEUMATOID ARTHRITIS
  5. ISONIAZID [Concomitant]
     Indication: TUBERCULOSIS
  6. RIFAMPICIN [Concomitant]
     Indication: TUBERCULOSIS
  7. ETHAMBUTOL HCL [Concomitant]
     Indication: TUBERCULOSIS

REACTIONS (1)
  - TUBERCULOUS PLEURISY [None]
